FAERS Safety Report 9701709 (Version 1)
Quarter: 2013Q4

REPORT INFORMATION
  Report Type: Report from Study
  Country: US (occurrence: US)
  Receive Date: 20131119
  Receipt Date: 20131119
  Transmission Date: 20140711
  Serious: Yes (Other)
  Sender: FDA-Public Use
  Company Number: US-SAVIENT-2012S1000096

PATIENT
  Age: 60 Year
  Sex: Female

DRUGS (20)
  1. KRYSTEXXA INJECTION [Suspect]
     Indication: GOUT
     Route: 042
     Dates: start: 201207, end: 201207
  2. KRYSTEXXA INJECTION [Suspect]
     Indication: GOUT
     Route: 042
     Dates: start: 2012, end: 2012
  3. KRYSTEXXA INJECTION [Suspect]
     Indication: GOUT
     Route: 042
     Dates: start: 2012, end: 2012
  4. KRYSTEXXA INJECTION [Suspect]
     Indication: GOUT
     Route: 042
     Dates: start: 20120924, end: 20120924
  5. COUMADIN /00014802/ [Concomitant]
     Indication: PRODUCT USED FOR UNKNOWN INDICATION
  6. LISINOPRIL [Concomitant]
     Indication: PRODUCT USED FOR UNKNOWN INDICATION
  7. METOPROLOL [Concomitant]
     Indication: PRODUCT USED FOR UNKNOWN INDICATION
  8. ALL OTHER THERAPEUTIC PRODUCTS [Concomitant]
     Indication: PRODUCT USED FOR UNKNOWN INDICATION
  9. HYDROCORTISONE [Concomitant]
     Indication: PREMEDICATION
     Dates: start: 201207, end: 201207
  10. HYDROCORTISONE [Concomitant]
     Indication: PREMEDICATION
     Dates: start: 2012, end: 2012
  11. HYDROCORTISONE [Concomitant]
     Indication: PREMEDICATION
     Dates: start: 2012, end: 2012
  12. HYDROCORTISONE [Concomitant]
     Indication: PREMEDICATION
     Dates: start: 20120924, end: 20120924
  13. BENADRYL /00000402/ [Concomitant]
     Indication: PREMEDICATION
     Dates: start: 201207, end: 201207
  14. BENADRYL /00000402/ [Concomitant]
     Indication: PREMEDICATION
     Dates: start: 2012, end: 2012
  15. BENADRYL /00000402/ [Concomitant]
     Indication: PREMEDICATION
     Dates: start: 2012, end: 2012
  16. BENADRYL /00000402/ [Concomitant]
     Indication: PREMEDICATION
     Dates: start: 20120924, end: 20120924
  17. TYLENOL /00020001/ [Concomitant]
     Indication: PREMEDICATION
     Dates: start: 201207, end: 201207
  18. TYLENOL /00020001/ [Concomitant]
     Indication: PREMEDICATION
     Dates: start: 2012, end: 2012
  19. TYLENOL /00020001/ [Concomitant]
     Indication: PREMEDICATION
     Dates: start: 2012, end: 2012
  20. TYLENOL /00020001/ [Concomitant]
     Indication: PREMEDICATION
     Dates: start: 20120924, end: 20120924

REACTIONS (4)
  - Infusion related reaction [Recovered/Resolved]
  - Malaise [Unknown]
  - Nasopharyngitis [Unknown]
  - Therapeutic response decreased [Unknown]
